FAERS Safety Report 7878612-2 (Version None)
Quarter: 2011Q4

REPORT INFORMATION
  Report Type: 
  Country: None (occurrence: None)
  Receive Date: 20111101
  Receipt Date: 20111101
  Transmission Date: 20120403
  Serious: Yes (Life-Threatening)
  Sender: FDA-Public Use
  Company Number: None

PATIENT
  Age: 62 Year
  Sex: Female
  Weight: 56.699 kg

DRUGS (1)
  1. TRAZODONE HCL [Suspect]
     Indication: PAIN
     Dates: start: 20111020, end: 20111025

REACTIONS (6)
  - CHOKING [None]
  - COUGH [None]
  - SPUTUM INCREASED [None]
  - PULMONARY OEDEMA [None]
  - PRODUCT QUALITY ISSUE [None]
  - DYSPNOEA [None]
